FAERS Safety Report 8080268-3 (Version None)
Quarter: 2012Q1

REPORT INFORMATION
  Report Type: 
  Country: None (occurrence: None)
  Receive Date: 20120130
  Receipt Date: 20120127
  Transmission Date: 20120608
  Serious: Yes (Other)
  Sender: FDA-Public Use
  Company Number: CA-BAYER-2012-006157

PATIENT
  Age: 44 Year
  Sex: Male
  Weight: 74.83 kg

DRUGS (1)
  1. AVELOX [Suspect]
     Dosage: UNK
     Dates: start: 20110701

REACTIONS (2)
  - MUSCULAR WEAKNESS [None]
  - INSOMNIA [None]
